FAERS Safety Report 7938580-1 (Version None)
Quarter: 2011Q4

REPORT INFORMATION
  Report Type: 
  Country: None (occurrence: None)
  Receive Date: 20111123
  Receipt Date: 20111007
  Transmission Date: 20120403
  Serious: Yes (Hospitalization, Other)
  Sender: FDA-Public Use
  Company Number: JP-ROCHE-1010581

PATIENT
  Age: 27 Year
  Sex: Male
  Weight: 46 kg

DRUGS (21)
  1. MYCOPHENOLATE MOFETIL (CELLCEPT) [Suspect]
     Dates: start: 20060818, end: 20061129
  2. PREDNISOLONE [Concomitant]
     Dates: start: 20080417, end: 20081023
  3. BUFFERIN (JAPAN) [Concomitant]
     Route: 048
  4. CLARUTE [Concomitant]
     Route: 048
     Dates: start: 20060915
  5. MYCOPHENOLATE MOFETIL (CELLCEPT) [Suspect]
     Dates: start: 20060322, end: 20060817
  6. PREDNISOLONE [Concomitant]
     Dosage: 2.5-10MG
     Dates: start: 20060301, end: 20080217
  7. SULFAMETHOXAZOLE AND TRIMETHOPRIM [Concomitant]
     Route: 048
  8. PRAVASTATIN SODIUM [Concomitant]
     Route: 048
  9. ALFAROL [Concomitant]
     Route: 048
     Dates: start: 20060310
  10. ISONIAZID [Suspect]
     Indication: PRODUCT USED FOR UNKNOWN INDICATION
     Route: 048
     Dates: end: 20060407
  11. PREDNISOLONE [Concomitant]
     Dosage: 20-50MG
     Dates: start: 20060301, end: 20060301
  12. JUVELA [Concomitant]
     Route: 048
  13. ADALAT [Concomitant]
     Route: 048
     Dates: start: 20060912, end: 20060912
  14. MYCOPHENOLATE MOFETIL (CELLCEPT) [Suspect]
     Indication: PROPHYLAXIS AGAINST TRANSPLANT REJECTION
     Route: 048
     Dates: start: 20060306, end: 20060321
  15. CINAL [Concomitant]
     Route: 048
  16. VALCYTE [Suspect]
     Indication: PRODUCT USED FOR UNKNOWN INDICATION
     Route: 048
     Dates: start: 20060308, end: 20060914
  17. PREDNISOLONE [Concomitant]
     Dosage: 2.5-10MG
     Route: 048
     Dates: end: 20060301
  18. OMEPRAZOLE [Concomitant]
     Route: 048
  19. ALLOPURINOL [Concomitant]
     Route: 048
  20. TACROLIMUS [Suspect]
     Indication: PRODUCT USED FOR UNKNOWN INDICATION
     Route: 048
  21. MYCOPHENOLATE MOFETIL (CELLCEPT) [Suspect]
     Dates: start: 20061130

REACTIONS (4)
  - WHITE BLOOD CELL COUNT DECREASED [None]
  - PANCYTOPENIA [None]
  - BLOOD IMMUNOGLOBULIN G DECREASED [None]
  - BLOOD URIC ACID INCREASED [None]
